FAERS Safety Report 11455705 (Version 2)
Quarter: 2016Q3

REPORT INFORMATION
  Report Type: Spontaneous
  Country: US (occurrence: US)
  Receive Date: 20150903
  Receipt Date: 20160822
  Transmission Date: 20161109
  Serious: No
  Sender: FDA-Public Use
  Company Number: US-BEH-2015052134

PATIENT
  Age: 54 Year
  Sex: Female
  Weight: 73.3 kg

DRUGS (30)
  1. ZYRTEC [Concomitant]
     Active Substance: CETIRIZINE HYDROCHLORIDE
  2. DALIRESP [Concomitant]
     Active Substance: ROFLUMILAST
  3. MARINOL [Concomitant]
     Active Substance: DRONABINOL
  4. LIDOCAINE. [Concomitant]
     Active Substance: LIDOCAINE
  5. SODIUM CHLORIDE. [Concomitant]
     Active Substance: SODIUM CHLORIDE
  6. CLARITIN [Concomitant]
     Active Substance: LORATADINE
  7. FOLIC ACID. [Concomitant]
     Active Substance: FOLIC ACID
  8. SINGULAIR [Concomitant]
     Active Substance: MONTELUKAST SODIUM
  9. PREDNISONE. [Concomitant]
     Active Substance: PREDNISONE
  10. ASPIRIN. [Concomitant]
     Active Substance: ASPIRIN
  11. FLONASE [Concomitant]
     Active Substance: FLUTICASONE PROPIONATE
  12. SPIRIVA [Concomitant]
     Active Substance: TIOTROPIUM BROMIDE MONOHYDRATE
  13. SB CLOTRIMAZOLE [Concomitant]
  14. ASMANEX [Concomitant]
     Active Substance: MOMETASONE FUROATE
  15. MELATONIN [Concomitant]
     Active Substance: MELATONIN
  16. OXYGEN. [Concomitant]
     Active Substance: OXYGEN
  17. ALBUTEROL. [Concomitant]
     Active Substance: ALBUTEROL
  18. EPIPEN [Concomitant]
     Active Substance: EPINEPHRINE
  19. MEDROL [Concomitant]
     Active Substance: METHYLPREDNISOLONE
  20. CVS MAGNESIUM [Concomitant]
  21. ZOLOFT [Concomitant]
     Active Substance: SERTRALINE HYDROCHLORIDE
  22. CALCIUM VITAMIN D [Concomitant]
     Active Substance: CALCIUM\VITAMIN D
  23. FLAXSEED [Concomitant]
     Active Substance: FLAX SEED
  24. XANAX [Concomitant]
     Active Substance: ALPRAZOLAM
  25. DIPHENHYDRAMINE. [Concomitant]
     Active Substance: DIPHENHYDRAMINE
  26. LEVAQUIN [Concomitant]
     Active Substance: LEVOFLOXACIN
  27. ZEMAIRA [Suspect]
     Active Substance: .ALPHA.1-PROTEINASE INHIBITOR HUMAN
     Indication: ALPHA-1 ANTI-TRYPSIN DEFICIENCY
     Route: 042
     Dates: start: 20150625
  28. DILTIAZEM HCL [Concomitant]
     Active Substance: DILTIAZEM HYDROCHLORIDE
  29. XOPENEX [Concomitant]
     Active Substance: LEVALBUTEROL HYDROCHLORIDE
  30. ACETYLCYSTEINE. [Concomitant]
     Active Substance: ACETYLCYSTEINE

REACTIONS (5)
  - Swelling face [Unknown]
  - Diarrhoea [Unknown]
  - Nausea [Unknown]
  - Vomiting [Unknown]
  - Headache [Unknown]

NARRATIVE: CASE EVENT DATE: 20150626
